FAERS Safety Report 25849962 (Version 1)
Quarter: 2025Q3

REPORT INFORMATION
  Report Type: Spontaneous
  Country: CA (occurrence: CA)
  Receive Date: 20250926
  Receipt Date: 20250926
  Transmission Date: 20251020
  Serious: Yes (Hospitalization, Other)
  Sender: APOTEX
  Company Number: CA-APOTEX-2025AP030410

PATIENT
  Age: 40 Year
  Sex: Female

DRUGS (32)
  1. BEVACIZUMAB [Suspect]
     Active Substance: BEVACIZUMAB
     Indication: Metastatic squamous cell carcinoma
     Route: 065
  2. BEVACIZUMAB [Suspect]
     Active Substance: BEVACIZUMAB
     Indication: Squamous cell carcinoma of the cervix
  3. PREDNISONE [Suspect]
     Active Substance: PREDNISONE
     Indication: Serositis
     Dosage: 70 MILLIGRAM, QD
     Route: 065
     Dates: start: 20230403, end: 202304
  4. PREDNISONE [Suspect]
     Active Substance: PREDNISONE
     Dosage: 50 MILLIGRAM, QD
     Route: 065
     Dates: start: 20230423, end: 202304
  5. PREDNISONE [Suspect]
     Active Substance: PREDNISONE
     Dosage: 40 MILLIGRAM, QD
     Route: 065
     Dates: start: 20230425, end: 202304
  6. AMILORIDE [Suspect]
     Active Substance: AMILORIDE
     Indication: Serositis
     Dosage: 10 MILLIGRAM, BID
     Route: 065
     Dates: start: 202304
  7. MYCOPHENOLATE MOFETIL [Suspect]
     Active Substance: MYCOPHENOLATE MOFETIL
     Indication: Encephalitis autoimmune
     Route: 065
     Dates: start: 20230413, end: 20230414
  8. MYCOPHENOLATE MOFETIL [Suspect]
     Active Substance: MYCOPHENOLATE MOFETIL
     Indication: Seizure
  9. THEOPHYLLINE [Suspect]
     Active Substance: THEOPHYLLINE
     Indication: Capillary leak syndrome
     Route: 065
     Dates: start: 20230713, end: 20230724
  10. FUROSEMIDE [Suspect]
     Active Substance: FUROSEMIDE
     Indication: Serositis
     Dosage: 20 MILLIGRAM, QID
     Route: 042
     Dates: start: 202304
  11. METHYLPREDNISOLONE [Suspect]
     Active Substance: METHYLPREDNISOLONE
     Indication: Serositis
     Dosage: 60 MILLIGRAM, QD (1 MG/KG)
     Route: 065
     Dates: start: 20230407, end: 202304
  12. METHYLPREDNISOLONE [Suspect]
     Active Substance: METHYLPREDNISOLONE
     Dosage: 1000 MILLIGRAM, QD
     Route: 065
     Dates: start: 20230414, end: 202304
  13. METHYLPREDNISOLONE [Suspect]
     Active Substance: METHYLPREDNISOLONE
     Dosage: 60 MILLIGRAM, QD (1 MG/KG)
     Route: 065
     Dates: start: 20230417, end: 20230424
  14. RITUXIMAB [Suspect]
     Active Substance: RITUXIMAB
     Indication: Encephalitis autoimmune
     Route: 065
     Dates: start: 20230509, end: 2023
  15. RITUXIMAB [Suspect]
     Active Substance: RITUXIMAB
     Indication: Seizure
     Route: 065
     Dates: start: 20230701
  16. CISPLATIN [Concomitant]
     Active Substance: CISPLATIN
     Indication: Metastatic squamous cell carcinoma
     Route: 065
  17. CISPLATIN [Concomitant]
     Active Substance: CISPLATIN
     Indication: Squamous cell carcinoma of the cervix
  18. CARBOPLATIN [Concomitant]
     Active Substance: CARBOPLATIN
     Indication: Metastatic squamous cell carcinoma
     Route: 065
  19. CARBOPLATIN [Concomitant]
     Active Substance: CARBOPLATIN
     Indication: Squamous cell carcinoma of the cervix
  20. PEMBROLIZUMAB [Concomitant]
     Active Substance: PEMBROLIZUMAB
     Indication: Metastatic squamous cell carcinoma
     Route: 065
  21. PEMBROLIZUMAB [Concomitant]
     Active Substance: PEMBROLIZUMAB
     Indication: Squamous cell carcinoma of the cervix
  22. PACLITAXEL [Concomitant]
     Active Substance: PACLITAXEL
     Indication: Metastatic squamous cell carcinoma
     Route: 065
  23. PACLITAXEL [Concomitant]
     Active Substance: PACLITAXEL
     Indication: Squamous cell carcinoma of the cervix
  24. HUMAN IMMUNOGLOBULIN G [Concomitant]
     Active Substance: HUMAN IMMUNOGLOBULIN G
     Indication: Capillary leak syndrome
     Route: 042
     Dates: start: 20230414, end: 20230424
  25. HUMAN IMMUNOGLOBULIN G [Concomitant]
     Active Substance: HUMAN IMMUNOGLOBULIN G
     Route: 042
     Dates: start: 20230428, end: 202304
  26. HUMAN IMMUNOGLOBULIN G [Concomitant]
     Active Substance: HUMAN IMMUNOGLOBULIN G
     Route: 042
     Dates: start: 20230430
  27. LEVETIRACETAM [Concomitant]
     Active Substance: LEVETIRACETAM
     Indication: Product used for unknown indication
     Dosage: 500 MILLIGRAM, BID
     Route: 065
     Dates: start: 20230419
  28. RUXOLITINIB [Concomitant]
     Active Substance: RUXOLITINIB
     Indication: Product used for unknown indication
     Dosage: 15 MILLIGRAM, BID
     Route: 065
     Dates: start: 20230515, end: 2023
  29. RUXOLITINIB [Concomitant]
     Active Substance: RUXOLITINIB
     Dosage: 20 MILLIGRAM, BID
     Route: 065
     Dates: start: 2023, end: 2023
  30. LANREOTIDE [Concomitant]
     Active Substance: LANREOTIDE
     Indication: Ill-defined disorder
     Dosage: 30 MILLIGRAM, Q.M.T.
     Route: 065
     Dates: start: 20230706
  31. MIDODRINE [Concomitant]
     Active Substance: MIDODRINE
     Indication: Ill-defined disorder
     Route: 065
     Dates: start: 20230706
  32. ALBUMIN HUMAN [Concomitant]
     Active Substance: ALBUMIN HUMAN
     Indication: Product used for unknown indication
     Dosage: UNK UNK, Q.WK.
     Route: 065
     Dates: start: 2023

REACTIONS (4)
  - Cardiomyopathy [Unknown]
  - Drug ineffective [Unknown]
  - Toxicity to various agents [Unknown]
  - Drug intolerance [Unknown]

NARRATIVE: CASE EVENT DATE: 20230401
